FAERS Safety Report 5125399-2 (Version None)
Quarter: 2006Q3

REPORT INFORMATION
  Report Type: 
  Country: None (occurrence: None)
  Receive Date: 20060822
  Receipt Date: 20060504
  Transmission Date: 20061208
  Serious: No
  Sender: FDA-Public Use
  Company Number: PHEH2006US05981

PATIENT
  Age: 72 Year
  Sex: Female

DRUGS (2)
  1. ENABLEX [Suspect]
     Indication: HYPERTONIC BLADDER
     Dosage: SEE IMAGE
     Route: 048
     Dates: start: 20060201, end: 20060401
  2. ENABLEX [Suspect]
     Indication: HYPERTONIC BLADDER
     Dosage: SEE IMAGE
     Route: 048
     Dates: start: 20060423

REACTIONS (2)
  - DRUG INEFFECTIVE [None]
  - DRY MOUTH [None]
